FAERS Safety Report 14430530 (Version 1)
Quarter: 2018Q1

REPORT INFORMATION
  Report Type: Spontaneous
  Country: IT (occurrence: IT)
  Receive Date: 20180124
  Receipt Date: 20180124
  Transmission Date: 20180509
  Serious: Yes (Hospitalization)
  Sender: FDA-Public Use
  Company Number: IT-ROCHE-2058412

PATIENT
  Age: 45 Year
  Sex: Male

DRUGS (6)
  1. DUROGESIC [Interacting]
     Active Substance: FENTANYL
     Indication: NEURALGIA
     Dosage: DATE OF LAST DOSE: 30/NOV/2017
     Route: 062
     Dates: start: 20170601
  2. GABAPENTIN. [Interacting]
     Active Substance: GABAPENTIN
     Indication: NEURALGIA
     Dosage: DATE OF LAST DOSE: 30/NOV/2017
     Route: 048
     Dates: start: 20170601
  3. RIVOTRIL [Suspect]
     Active Substance: CLONAZEPAM
     Indication: PRODUCT USED FOR UNKNOWN INDICATION
     Dosage: 2.5MG/ML?UNIT DOSE: 18 (DRP)?CUMULATIVE DOSE: 1674 (DRP); DATE OF LAST DOSE: 30/NOV/2017
     Route: 048
     Dates: start: 20170601
  4. CANNABIS [Interacting]
     Active Substance: CANNABIS SATIVA SUBSP. INDICA TOP
     Indication: NEURALGIA
     Dosage: DATE OF LAST DOSE: 30/NOV/2017
     Route: 065
     Dates: start: 20170601
  5. AMITRIPTYLINE [Interacting]
     Active Substance: AMITRIPTYLINE
     Indication: PRODUCT USED FOR UNKNOWN INDICATION
     Dosage: DATE OF LAST DOSE: 30/NOV/2017
     Route: 048
     Dates: start: 20170601
  6. DULOXETINE. [Interacting]
     Active Substance: DULOXETINE
     Indication: PRODUCT USED FOR UNKNOWN INDICATION
     Dosage: DATE OF LAST DOSE: 30/NOV/2017
     Route: 048
     Dates: start: 20170601

REACTIONS (7)
  - Drug interaction [Unknown]
  - Tremor [Recovering/Resolving]
  - Confusional state [Recovering/Resolving]
  - Urinary retention [Recovering/Resolving]
  - Memory impairment [Recovering/Resolving]
  - Syncope [Recovering/Resolving]
  - Sinus tachycardia [Recovering/Resolving]

NARRATIVE: CASE EVENT DATE: 20170901
